FAERS Safety Report 23940927 (Version 1)
Quarter: 2024Q2

REPORT INFORMATION
  Report Type: Spontaneous
  Country: US (occurrence: None)
  Receive Date: 20240605
  Receipt Date: 20240605
  Transmission Date: 20240716
  Serious: Yes (Other)
  Sender: FDA-Public Use
  Company Number: 2024A126573

PATIENT
  Age: 39 Year
  Sex: Female
  Weight: 64.5 kg

DRUGS (3)
  1. FARXIGA [Suspect]
     Active Substance: DAPAGLIFLOZIN PROPANEDIOL
     Route: 048
  2. TARPEYO [Suspect]
     Active Substance: BUDESONIDE
     Indication: IgA nephropathy
     Route: 048
     Dates: start: 20230603, end: 202403
  3. TARPEYO [Suspect]
     Active Substance: BUDESONIDE
     Indication: IgA nephropathy
     Route: 048
     Dates: start: 20230603, end: 202403

REACTIONS (19)
  - Kidney fibrosis [Unknown]
  - Polymenorrhoea [Unknown]
  - Chest pain [Unknown]
  - Dyspepsia [Unknown]
  - Weight increased [Unknown]
  - Urine abnormality [Unknown]
  - Swelling face [Unknown]
  - Blood creatinine increased [Unknown]
  - Heavy menstrual bleeding [Recovering/Resolving]
  - Dysmenorrhoea [Recovering/Resolving]
  - Muscle spasms [Not Recovered/Not Resolved]
  - Bone density decreased [Not Recovered/Not Resolved]
  - Swelling of eyelid [Not Recovered/Not Resolved]
  - Pain in extremity [Not Recovered/Not Resolved]
  - Flank pain [Not Recovered/Not Resolved]
  - Bone pain [Not Recovered/Not Resolved]
  - Myalgia [Not Recovered/Not Resolved]
  - Insomnia [Not Recovered/Not Resolved]
  - Blood glucose increased [Not Recovered/Not Resolved]

NARRATIVE: CASE EVENT DATE: 20230607
